FAERS Safety Report 6360135-3 (Version None)
Quarter: 2009Q3

REPORT INFORMATION
  Report Type: 
  Country: None (occurrence: None)
  Receive Date: 20090917
  Receipt Date: 20090915
  Transmission Date: 20100115
  Serious: Yes (Death)
  Sender: FDA-Public Use
  Company Number: PHHY2009GB35318

PATIENT
  Sex: Female

DRUGS (8)
  1. CLOZARIL [Suspect]
     Indication: SCHIZOPHRENIA
     Dosage: 75 MG, BID
     Route: 048
     Dates: start: 20010911
  2. PAROXETINE HCL [Concomitant]
     Dosage: 20 MG DAILY
     Route: 048
  3. METFORMIN HCL [Concomitant]
     Indication: DIABETES MELLITUS
     Dosage: 1.5 G DAILY
     Route: 048
  4. GLIMEPIRIDE [Concomitant]
     Indication: DIABETES MELLITUS
     Dosage: 4 MG DAILY
     Route: 048
  5. NOVOMIX [Concomitant]
     Indication: DIABETES MELLITUS
     Route: 058
  6. ORLISTAT [Concomitant]
     Indication: OBESITY
     Dosage: 360 MG DAILY
     Route: 048
  7. SIMVASTATIN [Concomitant]
  8. NORDETTE-28 [Concomitant]

REACTIONS (1)
  - DEEP VEIN THROMBOSIS [None]
